FAERS Safety Report 24278932 (Version 1)
Quarter: 2024Q3

REPORT INFORMATION
  Report Type: Spontaneous
  Country: US (occurrence: US)
  Receive Date: 20240903
  Receipt Date: 20240903
  Transmission Date: 20241016
  Serious: No
  Sender: PFIZER
  Company Number: US-PFIZER INC-PV202400079739

PATIENT
  Age: 75 Year
  Sex: Female

DRUGS (2)
  1. TUKYSA [Suspect]
     Active Substance: TUCATINIB
     Indication: Breast cancer female
     Dosage: 150 MG, 2X/DAY (150MG TAKE 1 TABLET TWICE A DAY)
  2. TUKYSA [Suspect]
     Active Substance: TUCATINIB
     Dosage: 100 MG, 2X/DAY (50MG TAKE 2 TABLET TWICE A DAY)

REACTIONS (4)
  - Pain in extremity [Unknown]
  - Weight loss poor [Unknown]
  - Loss of personal independence in daily activities [Unknown]
  - Off label use [Unknown]
